FAERS Safety Report 10440962 (Version 1)
Quarter: 2014Q3

REPORT INFORMATION
  Report Type: Spontaneous
  Country: US (occurrence: None)
  Receive Date: 20140908
  Receipt Date: 20140908
  Transmission Date: 20150326
  Serious: No
  Sender: FDA-Public Use
  Company Number: None

PATIENT
  Age: 60 Year
  Sex: Female
  Weight: 65.77 kg

DRUGS (1)
  1. PAROXETINE [Suspect]
     Active Substance: PAROXETINE\PAROXETINE HYDROCHLORIDE
     Indication: DEPRESSION
     Dosage: 20 MG. 1/2 PILL, ONCE DAILY, TAKEN BY MOUTH?
     Route: 048
     Dates: start: 19940315, end: 20140907

REACTIONS (7)
  - Anxiety [None]
  - Crying [None]
  - Paraesthesia [None]
  - Hypersomnia [None]
  - Product substitution issue [None]
  - Decreased activity [None]
  - Withdrawal syndrome [None]

NARRATIVE: CASE EVENT DATE: 20140902
